FAERS Safety Report 24866179 (Version 1)
Quarter: 2025Q1

REPORT INFORMATION
  Report Type: Spontaneous
  Country: IT (occurrence: IT)
  Receive Date: 20250121
  Receipt Date: 20250121
  Transmission Date: 20250408
  Serious: Yes (Death, Hospitalization, Other)
  Sender: JOHNSON AND JOHNSON
  Company Number: IT-JNJFOC-20241227823

PATIENT
  Sex: Male

DRUGS (2)
  1. INVOKANA [Suspect]
     Active Substance: CANAGLIFLOZIN
     Indication: Type 2 diabetes mellitus
     Route: 048
  2. CANAGLIFLOZIN\METFORMIN HYDROCHLORIDE [Suspect]
     Active Substance: CANAGLIFLOZIN\METFORMIN HYDROCHLORIDE
     Indication: Type 2 diabetes mellitus
     Route: 048

REACTIONS (8)
  - Death [Fatal]
  - Cardiovascular disorder [Unknown]
  - Hospitalisation [Unknown]
  - Cardiac failure [Unknown]
  - Acute myocardial infarction [Unknown]
  - Renal injury [Unknown]
  - Nervous system disorder [Unknown]
  - Visual impairment [Unknown]
